FAERS Safety Report 24991101 (Version 1)
Quarter: 2025Q1

REPORT INFORMATION
  Report Type: Spontaneous
  Country: FR (occurrence: FR)
  Receive Date: 20250220
  Receipt Date: 20250220
  Transmission Date: 20250409
  Serious: Yes (Hospitalization, Other)
  Sender: CHEPLAPHARM
  Company Number: None

PATIENT
  Age: 78 Year
  Sex: Male
  Weight: 64.449 kg

DRUGS (11)
  1. CLONAZEPAM [Suspect]
     Active Substance: CLONAZEPAM
     Indication: Restless legs syndrome
     Dosage: DOSAGE FORM: ORAL SOLUTION IN DROPS?DAILY DOSE: 10 DROP
     Route: 048
     Dates: start: 20200225, end: 20240407
  2. FUROSEMIDE [Concomitant]
     Active Substance: FUROSEMIDE
     Indication: Chronic kidney disease
     Dosage: DAILY DOSE: 40 MILLIGRAM
     Route: 048
  3. ASPIRIN [Concomitant]
     Active Substance: ASPIRIN
     Indication: Cardiovascular event prophylaxis
     Dosage: DOSAGE FORM: GASTRO-RESISTANT COATED TABLET ?DAILY DOSE: 75 MILLIGRAM
     Route: 048
  4. LIPTRUZET [Concomitant]
     Active Substance: ATORVASTATIN CALCIUM\EZETIMIBE
     Indication: Dyslipidaemia
     Dosage: DOSAGE FORM: FILM-COATED TABLET?DAILY DOSE: 1 DOSAGE FORM
     Route: 048
  5. ENTRESTO [Concomitant]
     Active Substance: SACUBITRIL\VALSARTAN
     Indication: Cardiac failure
     Dosage: DOSAGE FORM: FILM-COATED TABLET?DAILY DOSE: 2 DOSAGE FORM
     Route: 048
  6. ESOMEPRAZOLE [Concomitant]
     Active Substance: ESOMEPRAZOLE
     Indication: Gastrooesophageal reflux prophylaxis
     Dosage: DAILY DOSE: 20 MILLIGRAM
     Route: 048
  7. HERBALS\SAW PALMETTO [Concomitant]
     Active Substance: HERBALS\SAW PALMETTO
     Indication: Benign prostatic hyperplasia
     Dosage: DOSAGE FORM: CAPSULE?DAILY DOSE: 320 MILLIGRAM
     Route: 048
  8. SILODOSIN [Concomitant]
     Active Substance: SILODOSIN
     Indication: Benign prostatic hyperplasia
     Route: 048
  9. CHOLECALCIFEROL [Concomitant]
     Active Substance: CHOLECALCIFEROL
     Indication: Vitamin supplementation
     Dosage: DOSAGE FORM: ORAL SOLUTION
     Route: 048
  10. NEBIVOLOL [Concomitant]
     Active Substance: NEBIVOLOL
     Indication: Hypertension
     Dosage: DOSAGE FORM: TABLET?DAILY DOSE: 5 MILLIGRAM
     Route: 048
  11. Tetralysal [Concomitant]
     Indication: Mucocutaneous disorder
     Route: 048
     Dates: start: 202401, end: 202403

REACTIONS (6)
  - Confusional state [Recovered/Resolved]
  - Acute kidney injury [Recovered/Resolved]
  - Cardiac failure [Recovered/Resolved]
  - Drug level increased [Recovered/Resolved]
  - Leukostasis syndrome [Unknown]
  - Off label use [Recovered/Resolved]

NARRATIVE: CASE EVENT DATE: 20200225
